FAERS Safety Report 25520503 (Version 1)
Quarter: 2025Q3

REPORT INFORMATION
  Report Type: Spontaneous
  Country: CN (occurrence: CN)
  Receive Date: 20250704
  Receipt Date: 20250704
  Transmission Date: 20251021
  Serious: Yes (Hospitalization)
  Sender: PFIZER
  Company Number: CN-PFIZER INC-PV202500078928

PATIENT
  Age: 4 Year
  Sex: Male
  Weight: 12.5 kg

DRUGS (6)
  1. EPIRUBICIN [Suspect]
     Active Substance: EPIRUBICIN
     Indication: Lymphoma
     Dosage: 17.8 MG, 1X/DAY
     Route: 042
     Dates: start: 20250413, end: 20250414
  2. METHOTREXATE SODIUM [Suspect]
     Active Substance: METHOTREXATE SODIUM
     Indication: Lymphoma
     Dosage: 4.74 G, 1X/DAY
     Route: 042
     Dates: start: 20250412, end: 20250412
  3. CYCLOPHOSPHAMIDE [Suspect]
     Active Substance: CYCLOPHOSPHAMIDE
     Indication: Lymphoma
     Dosage: 0.3 G, 1X/DAY
     Route: 042
     Dates: start: 20250413, end: 20250414
  4. SODIUM CHLORIDE [Concomitant]
     Active Substance: SODIUM CHLORIDE
     Indication: Vehicle solution use
     Dosage: 20 ML, 1X/DAY
     Route: 042
     Dates: start: 20250412, end: 20250412
  5. SODIUM CHLORIDE [Concomitant]
     Active Substance: SODIUM CHLORIDE
     Dosage: 20 ML, 1X/DAY
     Route: 042
     Dates: start: 20250413, end: 20250414
  6. SODIUM CHLORIDE [Concomitant]
     Active Substance: SODIUM CHLORIDE
     Dosage: 480 ML, 1X/DAY
     Route: 042
     Dates: start: 20250413, end: 20250414

REACTIONS (4)
  - Myelosuppression [Recovering/Resolving]
  - Cough [Unknown]
  - Tonsillar hypertrophy [Unknown]
  - Breath sounds abnormal [Unknown]

NARRATIVE: CASE EVENT DATE: 20250419
